FAERS Safety Report 20976621 (Version 1)
Quarter: 2022Q2

REPORT INFORMATION
  Report Type: Spontaneous
  Country: US (occurrence: US)
  Receive Date: 20220617
  Receipt Date: 20220617
  Transmission Date: 20220721
  Serious: Yes (Life-Threatening, Hospitalization, Other)
  Sender: FDA-Public Use
  Company Number: US-PFIZER INC-202200833991

PATIENT
  Age: 2 Year
  Sex: Female

DRUGS (5)
  1. CYTARABINE [Suspect]
     Active Substance: CYTARABINE
     Indication: Myeloid leukaemia
     Dosage: THREE SUBSEQUENT CYCLES
  2. DAUNORUBICIN [Suspect]
     Active Substance: DAUNORUBICIN
     Indication: Myeloid leukaemia
     Dosage: THREE SUBSEQUENT CYCLES
  3. ETOPOSIDE [Suspect]
     Active Substance: ETOPOSIDE
     Indication: Myeloid leukaemia
     Dosage: THREE SUBSEQUENT CYCLES
  4. DECITABINE [Concomitant]
     Active Substance: DECITABINE
     Dosage: UNK
  5. VORINOSTAT [Concomitant]
     Active Substance: VORINOSTAT
     Dosage: UNK

REACTIONS (1)
  - Vascular device infection [Unknown]
